FAERS Safety Report 12168596 (Version 1)
Quarter: 2016Q1

REPORT INFORMATION
  Report Type: Spontaneous
  Country: US (occurrence: US)
  Receive Date: 20160310
  Receipt Date: 20160310
  Transmission Date: 20160526
  Serious: No
  Sender: FDA-Public Use
  Company Number: US-BIOGEN-2016BI00197392

PATIENT
  Age: 51 Year
  Sex: Male

DRUGS (1)
  1. AVONEX [Suspect]
     Active Substance: INTERFERON BETA-1A
     Indication: MULTIPLE SCLEROSIS
     Route: 030
     Dates: start: 20120101

REACTIONS (15)
  - Musculoskeletal disorder [Not Recovered/Not Resolved]
  - Injection site pain [Recovered/Resolved]
  - Influenza like illness [Recovered/Resolved]
  - Eating disorder [Not Recovered/Not Resolved]
  - Underweight [Not Recovered/Not Resolved]
  - Body temperature fluctuation [Not Recovered/Not Resolved]
  - Injection site erythema [Not Recovered/Not Resolved]
  - Nasal congestion [Not Recovered/Not Resolved]
  - Gastric disorder [Not Recovered/Not Resolved]
  - Nasopharyngitis [Not Recovered/Not Resolved]
  - Malaise [Recovered/Resolved]
  - Injection site induration [Recovered/Resolved]
  - Injection site hyperaesthesia [Not Recovered/Not Resolved]
  - Tremor [Recovered/Resolved]
  - Pyrexia [Recovered/Resolved]

NARRATIVE: CASE EVENT DATE: 20160220
